FAERS Safety Report 11934803 (Version 1)
Quarter: 2016Q1

REPORT INFORMATION
  Report Type: Spontaneous
  Country: GB (occurrence: GB)
  Receive Date: 20160121
  Receipt Date: 20160121
  Transmission Date: 20160526
  Serious: Yes (Other)
  Sender: FDA-Public Use
  Company Number: GB-009507513-1601GBR006669

PATIENT
  Age: 72 Year
  Sex: Male
  Weight: 125 kg

DRUGS (7)
  1. DOXYCYCLINE. [Concomitant]
     Active Substance: DOXYCYCLINE
     Dates: start: 20150615
  2. FUROSEMIDE. [Concomitant]
     Active Substance: FUROSEMIDE
     Dosage: EACH MORNING
     Dates: start: 20150615
  3. LISINOPRIL. [Concomitant]
     Active Substance: LISINOPRIL
     Dates: start: 20150615
  4. LYRICA [Concomitant]
     Active Substance: PREGABALIN
     Indication: ILL-DEFINED DISORDER
     Dosage: 1 EVERY 4 HOURS (6 DOSES PER DAY)
     Dates: start: 20150615
  5. GLICLAZIDE [Concomitant]
     Active Substance: GLICLAZIDE
     Dates: start: 20151021, end: 20151207
  6. IVABRADINE [Concomitant]
     Active Substance: IVABRADINE
     Dosage: TAKE HALF A TABLET 2 X DAILY 2.5MG AS ADVISED B...
     Dates: start: 20150611
  7. SITAGLIPTIN PHOSPHATE [Suspect]
     Active Substance: SITAGLIPTIN PHOSPHATE
     Route: 048
     Dates: start: 20151223

REACTIONS (3)
  - Diarrhoea [Recovering/Resolving]
  - Abdominal pain [Recovering/Resolving]
  - Pollakiuria [Recovering/Resolving]

NARRATIVE: CASE EVENT DATE: 20160111
